FAERS Safety Report 20009445 (Version 1)
Quarter: 2021Q4

REPORT INFORMATION
  Report Type: Spontaneous
  Country: US (occurrence: US)
  Receive Date: 20211028
  Receipt Date: 20211028
  Transmission Date: 20220303
  Serious: Yes (Hospitalization)
  Sender: FDA-Public Use
  Company Number: None

PATIENT
  Age: 78 Year
  Sex: Female
  Weight: 69.6 kg

DRUGS (6)
  1. IMDEVIMAB [Suspect]
     Active Substance: IMDEVIMAB
     Indication: COVID-19
     Dosage: ?          OTHER FREQUENCY:ONCE;
     Route: 042
     Dates: start: 20211021, end: 20211021
  2. CASIRIVIMAB [Suspect]
     Active Substance: CASIRIVIMAB
     Indication: COVID-19
     Dosage: ?          OTHER FREQUENCY:ONCE;
     Route: 042
     Dates: start: 20211021, end: 20211021
  3. ACETAMINOPHEN [Concomitant]
     Active Substance: ACETAMINOPHEN
     Dates: start: 20211021, end: 20211021
  4. KETOROLAC [Concomitant]
     Active Substance: KETOROLAC TROMETHAMINE
     Dates: start: 20211021, end: 20211021
  5. ISOVUE 370 [Concomitant]
     Active Substance: IOPAMIDOL
     Dates: start: 20211021, end: 20211021
  6. Prochlorperazine (Compazine) [Concomitant]
     Dates: start: 20211021, end: 20211021

REACTIONS (5)
  - Wheezing [None]
  - Oxygen saturation decreased [None]
  - Infusion related reaction [None]
  - Chronic obstructive pulmonary disease [None]
  - Hypersensitivity [None]

NARRATIVE: CASE EVENT DATE: 20211021
